FAERS Safety Report 21439078 (Version 1)
Quarter: 2022Q4

REPORT INFORMATION
  Report Type: Report from Study
  Country: IN (occurrence: IN)
  Receive Date: 20221011
  Receipt Date: 20221011
  Transmission Date: 20230113
  Serious: Yes (Other)
  Sender: FDA-Public Use
  Company Number: IN-Accord-280956

PATIENT

DRUGS (3)
  1. METHOTREXATE [Suspect]
     Active Substance: METHOTREXATE
     Indication: Lip and/or oral cavity cancer
     Route: 048
  2. ERLOTINIB HYDROCHLORIDE [Suspect]
     Active Substance: ERLOTINIB HYDROCHLORIDE
     Indication: Lip and/or oral cavity cancer
  3. CELECOXIB [Suspect]
     Active Substance: CELECOXIB
     Indication: Lip and/or oral cavity cancer
     Route: 048

REACTIONS (2)
  - Mucosal inflammation [Unknown]
  - Liver function test abnormal [Unknown]
